FAERS Safety Report 8853814 (Version 3)
Quarter: 2013Q1

REPORT INFORMATION
  Report Type: Spontaneous
  Country: US (occurrence: US)
  Receive Date: 20121022
  Receipt Date: 20130123
  Transmission Date: 20140127
  Serious: Yes (Other)
  Sender: FDA-Public Use
  Company Number: US-BAYER-2012-107864

PATIENT
  Age: 26 Year
  Sex: Female
  Weight: 68.03 kg

DRUGS (10)
  1. YASMIN [Suspect]
     Indication: CONTRACEPTION
     Dosage: UNK
     Dates: start: 200505, end: 200811
  2. OCELLA [Suspect]
     Indication: CONTRACEPTION
     Dosage: UNK
     Dates: start: 200505, end: 200811
  3. NAPROXEN [Concomitant]
     Dosage: 500 MG, UNK
     Route: 048
     Dates: start: 20050427
  4. METHOCARBAMOL [Concomitant]
     Dosage: 500 MG, UNK
     Route: 048
     Dates: start: 20050427
  5. FLONASE [Concomitant]
     Dosage: 16 G, UNK
     Route: 048
     Dates: start: 20050427
  6. ALLEGRA [Concomitant]
     Dosage: 180 MG, UNK
     Route: 048
     Dates: start: 20050427
  7. HYOSCYAMINE [Concomitant]
     Dosage: 0.125 MG, UNK
     Route: 048
     Dates: start: 20050530
  8. PROMETHAZINE [Concomitant]
     Dosage: 50 MG, UNK
     Route: 048
     Dates: start: 20050530
  9. BENADRYL [Concomitant]
  10. IBUPROFEN [Concomitant]
     Dosage: UNK, AS NEEDED
     Dates: start: 1995

REACTIONS (11)
  - Pulmonary embolism [None]
  - Chest pain [None]
  - Dyspnoea [None]
  - Asthenia [None]
  - Injury [None]
  - Pain [None]
  - Hilar lymphadenopathy [None]
  - Emotional distress [None]
  - Fear of death [None]
  - Nervousness [None]
  - Depression [None]
